FAERS Safety Report 5322795-5 (Version None)
Quarter: 2007Q2

REPORT INFORMATION
  Report Type: 
  Country: None (occurrence: None)
  Receive Date: 20070511
  Receipt Date: 20070430
  Transmission Date: 20071010
  Serious: Yes (Hospitalization, Disabling, Other)
  Sender: FDA-Public Use
  Company Number: US-PFIZER INC-2007016826

PATIENT
  Sex: Male
  Weight: 140.6 kg

DRUGS (14)
  1. CHANTIX [Suspect]
     Indication: SMOKING CESSATION THERAPY
     Dates: start: 20070224, end: 20070301
  2. CLONAZEPAM [Concomitant]
  3. TEGRETOL [Concomitant]
  4. BENAZEPRIL HYDROCHLORIDE [Concomitant]
  5. ZETIA [Concomitant]
  6. NAPROSYN [Concomitant]
  7. DARVOCET [Concomitant]
  8. PROMETHAZINE W/ CODEINE [Concomitant]
  9. VITAMINS [Concomitant]
  10. GLUCOSAMINE [Concomitant]
  11. CALCIUM CHLORIDE [Concomitant]
  12. CYCLOBENZAPRINE HCL [Concomitant]
  13. INSULIN [Concomitant]
  14. COLCHICINE [Concomitant]

REACTIONS (6)
  - ARTHRALGIA [None]
  - ARTHRITIS [None]
  - ARTHROPATHY [None]
  - MALAISE [None]
  - PNEUMONIA [None]
  - TREMOR [None]
